FAERS Safety Report 6820394-7 (Version None)
Quarter: 2010Q3

REPORT INFORMATION
  Report Type: 
  Country: None (occurrence: None)
  Receive Date: 20100707
  Receipt Date: 20100630
  Transmission Date: 20110219
  Serious: Yes (Other)
  Sender: FDA-Public Use
  Company Number: US-ELI_LILLY_AND_COMPANY-US201007000294

PATIENT
  Sex: Female

DRUGS (5)
  1. HUMALOG MIX 75/25 [Suspect]
     Indication: TYPE 2 DIABETES MELLITUS
     Dosage: UNK, 2/D
  2. HUMALOG MIX 75/25 [Suspect]
     Dosage: UNK, 2/D
  3. HUMALOG MIX 75/25 [Suspect]
     Dosage: UNK, 2/D
  4. GLYBURIDE [Concomitant]
  5. METFORMIN HCL [Concomitant]

REACTIONS (2)
  - DRUG DISPENSING ERROR [None]
  - MYOCARDIAL INFARCTION [None]
